FAERS Safety Report 6830474-8 (Version None)
Quarter: 2010Q3

REPORT INFORMATION
  Report Type: 
  Country: None (occurrence: None)
  Receive Date: 20100712
  Receipt Date: 20100701
  Transmission Date: 20110219
  Serious: No
  Sender: FDA-Public Use
  Company Number: US-BIOGENIDEC-2010BI022874

PATIENT
  Age: 31 Year
  Sex: Female

DRUGS (2)
  1. TYSABRI [Suspect]
     Indication: MULTIPLE SCLEROSIS
     Route: 042
     Dates: start: 20071115, end: 20080703
  2. TYSABRI [Suspect]
     Route: 042
     Dates: start: 20090914

REACTIONS (5)
  - DYSPEPSIA [None]
  - GAIT DISTURBANCE [None]
  - HYPOACUSIS [None]
  - IRRITABILITY [None]
  - MEMORY IMPAIRMENT [None]
